FAERS Safety Report 8961921 (Version 1)
Quarter: 2012Q4

REPORT INFORMATION
  Report Type: 
  Country: US (occurrence: US)
  Receive Date: 20121213
  Receipt Date: 20121213
  Transmission Date: 20130627
  Serious: No
  Sender: FDA-Public Use
  Company Number: US-009507513-1212USA004013

PATIENT
  Age: 35 Year
  Sex: Female

DRUGS (1)
  1. NUVARING [Suspect]
     Dosage: 3 weeks in, 1 week out
     Route: 067
     Dates: start: 2009

REACTIONS (2)
  - Unintended pregnancy [Unknown]
  - Inappropriate schedule of drug administration [Unknown]
